FAERS Safety Report 4830534-7 (Version None)
Quarter: 2005Q4

REPORT INFORMATION
  Report Type: 
  Country: None (occurrence: None)
  Receive Date: 20051115
  Receipt Date: 20051103
  Transmission Date: 20060501
  Serious: Yes (Hospitalization, Other)
  Sender: FDA-Public Use
  Company Number: 2005150839

PATIENT
  Age: 67 Year
  Sex: Male
  Weight: 95.2554 kg

DRUGS (7)
  1. LIPITOR [Suspect]
     Indication: BLOOD CHOLESTEROL
     Dosage: 10 MG (10 MG, 1 IN 1 D), ORAL
     Route: 048
     Dates: start: 20041001
  2. ATENOLOL [Concomitant]
  3. CARDIZEM CD [Concomitant]
  4. KEPPRA [Concomitant]
  5. TAMSULOSIN HCL [Concomitant]
  6. WARFARIN SODIUM [Concomitant]
  7. CO-Q-10 (UBIDECARENONE) [Concomitant]

REACTIONS (10)
  - BALANCE DISORDER [None]
  - CATARACT [None]
  - CONSTIPATION [None]
  - DIPLOPIA [None]
  - MYALGIA [None]
  - PARAESTHESIA [None]
  - PARAESTHESIA ORAL [None]
  - SUPRAVENTRICULAR TACHYCARDIA [None]
  - VERTEBRAL ARTERY OCCLUSION [None]
  - VISUAL FIELD DEFECT [None]
